FAERS Safety Report 5073686-9 (Version None)
Quarter: 2006Q3

REPORT INFORMATION
  Report Type: 
  Country: None (occurrence: None)
  Receive Date: 20060808
  Receipt Date: 20041111
  Transmission Date: 20061208
  Serious: No
  Sender: FDA-Public Use
  Company Number: US-AMGEN-KDL099461

PATIENT
  Sex: Female
  Weight: 126.7 kg

DRUGS (12)
  1. PROCRIT [Suspect]
     Indication: RENAL FAILURE CHRONIC
     Route: 058
     Dates: start: 20041001, end: 20041112
  2. GLYBURIDE [Concomitant]
     Route: 048
  3. AVANDIA [Concomitant]
  4. TOPROL-XL [Concomitant]
  5. ACTOS [Concomitant]
  6. NEXIUM [Concomitant]
  7. SYNTHROID [Concomitant]
  8. FOLIC ACID [Concomitant]
  9. ASCORBIC ACID [Concomitant]
  10. OSCAL [Concomitant]
  11. CENTRUM SILVER [Concomitant]
  12. LASIX [Concomitant]

REACTIONS (8)
  - BALANCE DISORDER [None]
  - CONDITION AGGRAVATED [None]
  - DECREASED APPETITE [None]
  - DRY MOUTH [None]
  - DYSGEUSIA [None]
  - FATIGUE [None]
  - HYPERTENSION [None]
  - VERTIGO [None]
